FAERS Safety Report 14448209 (Version 1)
Quarter: 2018Q1

REPORT INFORMATION
  Report Type: Report from Study
  Country: RS (occurrence: RS)
  Receive Date: 20180126
  Receipt Date: 20180126
  Transmission Date: 20180509
  Serious: Yes (Hospitalization, Other)
  Sender: FDA-Public Use
  Company Number: RS-BIOGEN-2017BI00376463

PATIENT
  Age: 43 Year
  Sex: Male
  Weight: 62 kg

DRUGS (10)
  1. DYSURGAL (ATROPINE) [Concomitant]
     Indication: INCONTINENCE
     Route: 048
     Dates: start: 20131230
  2. AMOXICILLIN. [Concomitant]
     Active Substance: AMOXICILLIN
     Indication: URINARY TRACT INFECTION
     Route: 048
     Dates: start: 20170316, end: 20170319
  3. PANTOPRAZOLE [Concomitant]
     Active Substance: PANTOPRAZOLE
     Indication: PROPHYLAXIS
     Route: 048
     Dates: start: 20170320
  4. FOLAN [Concomitant]
     Active Substance: FOLIC ACID
     Indication: PROPHYLAXIS
     Route: 048
     Dates: start: 20170526
  5. ZOLOFT [Concomitant]
     Active Substance: SERTRALINE HYDROCHLORIDE
     Indication: AFFECTIVE DISORDER
     Route: 048
     Dates: start: 20170427
  6. BROMAZEPAM [Concomitant]
     Active Substance: BROMAZEPAM
     Indication: AFFECTIVE DISORDER
     Route: 048
     Dates: start: 20170418
  7. TOCOPHEROL [Concomitant]
     Active Substance: TOCOPHEROL
     Indication: MULTIPLE SCLEROSIS
     Route: 048
     Dates: start: 20110915
  8. OLIGOGAL SE [Concomitant]
     Indication: PROPHYLAXIS
     Route: 048
     Dates: start: 20170526
  9. DACLIZUMAB HYP [Suspect]
     Active Substance: DACLIZUMAB
     Indication: MULTIPLE SCLEROSIS
     Route: 058
     Dates: start: 20140623
  10. CHOLECALCIFEROL [Concomitant]
     Active Substance: CHOLECALCIFEROL
     Indication: MULTIPLE SCLEROSIS
     Route: 048
     Dates: start: 20161105

REACTIONS (2)
  - Sepsis [Recovered/Resolved]
  - Urinary retention [Recovered/Resolved]

NARRATIVE: CASE EVENT DATE: 20170320
